FAERS Safety Report 6859912-1 (Version None)
Quarter: 2010Q3

REPORT INFORMATION
  Report Type: 
  Country: None (occurrence: None)
  Receive Date: 20100720
  Receipt Date: 20100708
  Transmission Date: 20110219
  Serious: Yes (Death, Hospitalization)
  Sender: FDA-Public Use
  Company Number: ES-WYE-H16082710

PATIENT
  Age: 72 Year
  Sex: Male

DRUGS (3)
  1. TYGACIL [Suspect]
     Indication: ACINETOBACTER INFECTION
     Dosage: 100 MG LOADING DOSE, THEN 50 MG Q 12H
     Route: 042
  2. TYGACIL [Suspect]
     Indication: ABDOMINAL ABSCESS
  3. TYGACIL [Suspect]
     Indication: POST PROCEDURAL INFECTION

REACTIONS (3)
  - ABDOMINAL INFECTION [None]
  - MORGANELLA INFECTION [None]
  - SUPERINFECTION [None]
